FAERS Safety Report 21360538 (Version 1)
Quarter: 2022Q3

REPORT INFORMATION
  Report Type: Spontaneous
  Country: US (occurrence: None)
  Receive Date: 20220921
  Receipt Date: 20220921
  Transmission Date: 20221027
  Serious: Yes (Death)
  Sender: FDA-Public Use
  Company Number: None

PATIENT
  Age: 80 Year
  Sex: Male

DRUGS (1)
  1. MYOBLOC [Suspect]
     Active Substance: RIMABOTULINUMTOXINB
     Indication: Parkinson^s disease
     Dosage: INJECT 5000 UNITS OF MYOBLOC INTRAMUSCULARY INTO FACE AREA AS DIRECTED  BY PHYSICIAN OFFICE EVERY 9
     Route: 030
     Dates: start: 20210708

REACTIONS (1)
  - Death [None]

NARRATIVE: CASE EVENT DATE: 20220709
